FAERS Safety Report 8295316-5 (Version None)
Quarter: 2012Q2

REPORT INFORMATION
  Report Type: 
  Country: None (occurrence: None)
  Receive Date: 20120418
  Receipt Date: 20120411
  Transmission Date: 20120825
  Serious: Yes (Other)
  Sender: FDA-Public Use
  Company Number: DE-AMGEN-DEUSP2012022821

PATIENT
  Age: 57 Year
  Sex: Male

DRUGS (1)
  1. CINACALCET HYDROCHLORIDE [Suspect]
     Indication: BLOOD PARATHYROID HORMONE INCREASED
     Dosage: 60 MG, UNK
     Dates: start: 20120210, end: 20120315

REACTIONS (4)
  - BLISTER [None]
  - SKIN EXFOLIATION [None]
  - BLOOD CREATINE INCREASED [None]
  - SKIN REACTION [None]
